FAERS Safety Report 4734882-0 (Version None)
Quarter: 2005Q3

REPORT INFORMATION
  Report Type: 
  Country: None (occurrence: None)
  Receive Date: 20050729
  Receipt Date: 20050719
  Transmission Date: 20060218
  Serious: Yes (Death)
  Sender: FDA-Public Use
  Company Number: MC200500645

PATIENT
  Sex: Male
  Weight: 96 kg

DRUGS (2)
  1. ANGIOMAX [Suspect]
     Indication: CORONARY ARTERY SURGERY
     Dosage: 150 MG, BOLUS, IV BOLUS; SEE IMAGE
     Route: 040
     Dates: start: 20050719, end: 20050719
  2. ANGIOMAX [Suspect]
     Indication: CORONARY ARTERY SURGERY
     Dosage: 150 MG, BOLUS, IV BOLUS; SEE IMAGE
     Route: 040
     Dates: start: 20050719, end: 20050719

REACTIONS (5)
  - COAGULATION TIME ABNORMAL [None]
  - DRUG ADMINISTRATION ERROR [None]
  - INCORRECT ROUTE OF DRUG ADMINISTRATION [None]
  - MITRAL VALVE INCOMPETENCE [None]
  - POST PROCEDURAL COMPLICATION [None]
